FAERS Safety Report 9769416 (Version 2)
Quarter: 2013Q4

REPORT INFORMATION
  Report Type: Spontaneous
  Country: US (occurrence: US)
  Receive Date: 20131218
  Receipt Date: 20131218
  Transmission Date: 20140711
  Serious: Yes (Other)
  Sender: FDA-Public Use
  Company Number: PHEH2013US018133

PATIENT
  Sex: Male

DRUGS (15)
  1. EXELON PATCH [Suspect]
     Indication: DEMENTIA
     Dosage: 9.5 MG, DAILY
     Route: 062
  2. EXELON PATCH [Suspect]
     Dosage: 13.3 MG, DAILY
     Route: 062
  3. NAMENDA [Concomitant]
     Dosage: 100 MG, BID
  4. SINEMET [Concomitant]
     Dosage: 2 DF, (25/100) MG EVERY 3 HOURS
  5. COMTAN [Concomitant]
     Dosage: 200 MG, EVERY 3 HOURS
  6. SEROQUEL [Concomitant]
     Dosage: 25 MG, AT 6AM, 3PM, AND TWO PILLS AT 9PM
  7. DIGOXIN [Concomitant]
     Dosage: 25 MG, QD
  8. HYDRALAZINE [Concomitant]
     Dosage: 25 MG, BID
  9. COLACE [Concomitant]
     Dosage: 100 MG, QD
  10. ECOTRIN [Concomitant]
     Dosage: UNK UKN, QD
  11. VIT. E [Concomitant]
     Dosage: 400 MG, QD
  12. VITAMIN D3 [Concomitant]
     Dosage: 5000 MG, QD
  13. VITAMIIN C [Concomitant]
     Dosage: 500 MG, QD
  14. VITAMIN B12 [Concomitant]
     Dosage: 100 UG, QD
  15. MULTI-VIT [Concomitant]
     Dosage: UNK UKN, UNK

REACTIONS (9)
  - Dysphagia [Unknown]
  - Weight decreased [Unknown]
  - Mental impairment [Unknown]
  - General physical health deterioration [Unknown]
  - Chest discomfort [Unknown]
  - Dysphonia [Unknown]
  - Decreased appetite [Unknown]
  - Nausea [Unknown]
  - Tremor [Unknown]
